FAERS Safety Report 16107949 (Version 2)
Quarter: 2019Q2

REPORT INFORMATION
  Report Type: Spontaneous
  Country: JP (occurrence: JP)
  Receive Date: 20190322
  Receipt Date: 20190422
  Transmission Date: 20190711
  Serious: Yes (Other)
  Sender: FDA-Public Use
  Company Number: JP-009507513-1903JPN008545

PATIENT
  Age: 82 Year
  Sex: Female

DRUGS (2)
  1. PEMBROLIZUMAB. [Suspect]
     Active Substance: PEMBROLIZUMAB
     Indication: NODULAR MELANOMA
     Dosage: 3 MILLIGRAM/KILOGRAM, EVERY 3 WEEKS
     Route: 041
  2. IPILIMUMAB [Suspect]
     Active Substance: IPILIMUMAB
     Indication: NODULAR MELANOMA
     Dosage: 3 MILLIGRAM/KILOGRAM, Q3W

REACTIONS (4)
  - Immune-mediated adverse reaction [Recovering/Resolving]
  - Malignant neoplasm progression [Unknown]
  - Hypopituitarism [Recovering/Resolving]
  - Incorrect dose administered [Unknown]
